FAERS Safety Report 4340815-1 (Version None)
Quarter: 2004Q2

REPORT INFORMATION
  Report Type: 
  Country: None (occurrence: None)
  Receive Date: 20040419
  Receipt Date: 20030709
  Transmission Date: 20050107
  Serious: No
  Sender: FDA-Public Use
  Company Number: US-GLAXOSMITHKLINE-A0416595A

PATIENT
  Age: 20 Year
  Sex: Male

DRUGS (1)
  1. ESKALITH [Suspect]
     Dosage: 900MG PER DAY
     Route: 048
     Dates: start: 20030101

REACTIONS (1)
  - JOINT SWELLING [None]
